FAERS Safety Report 23922316 (Version 1)
Quarter: 2024Q2

REPORT INFORMATION
  Report Type: Report from Study
  Country: US (occurrence: US)
  Receive Date: 20240531
  Receipt Date: 20240531
  Transmission Date: 20240716
  Serious: No
  Sender: FDA-Public Use
  Company Number: US-E2BLSMVVAL-CLI/USA/24/0007635

PATIENT
  Age: 12 Year
  Sex: Male
  Weight: 38.83 kg

DRUGS (3)
  1. JAVYGTOR [Suspect]
     Active Substance: SAPROPTERIN DIHYDROCHLORIDE
     Indication: Hyperphenylalaninaemia
     Dosage: SAPROPTERIN DIHYDROCHLORIDE (JAYVGTOR) 500 MG POWDER AND SAPROPTERIN DIHYDROCHLORIDE (JAYVGTOR) 100
     Route: 048
  2. JAVYGTOR [Suspect]
     Active Substance: SAPROPTERIN DIHYDROCHLORIDE
     Indication: Hyperphenylalaninaemia
     Dosage: SAPROPTERIN DIHYDROCHLORIDE (JAYVGTOR) 500 MG POWDER AND SAPROPTERIN DIHYDROCHLORIDE (JAYVGTOR) 100
     Route: 048
  3. PERIFLEX ADVANCE 35 G 369 POWDER [Concomitant]
     Indication: Product used for unknown indication

REACTIONS (1)
  - Influenza [Unknown]
